FAERS Safety Report 17568996 (Version 2)
Quarter: 2020Q1

REPORT INFORMATION
  Report Type: Report from Study
  Country: IT (occurrence: IT)
  Receive Date: 20200321
  Receipt Date: 20200330
  Transmission Date: 20200409
  Serious: Yes (Death, Hospitalization)
  Sender: FDA-Public Use
  Company Number: NVSC2020IT080861

PATIENT
  Age: 64 Year
  Sex: Male
  Weight: 68 kg

DRUGS (4)
  1. LANSOPRAZOLO [Concomitant]
     Active Substance: LANSOPRAZOLE
     Indication: GASTRIC DISORDER
     Dosage: 15 MG
     Route: 065
     Dates: start: 20190314, end: 20190919
  2. TAFINLAR [Suspect]
     Active Substance: DABRAFENIB MESYLATE
     Indication: METASTATIC MALIGNANT MELANOMA
     Dosage: UNK
     Route: 048
     Dates: start: 20190806, end: 20190828
  3. TAFINLAR [Suspect]
     Active Substance: DABRAFENIB MESYLATE
     Indication: METASTATIC MALIGNANT MELANOMA
     Dosage: UNK
     Route: 048
     Dates: start: 20190806, end: 20190828
  4. NIVOLUMAB [Suspect]
     Active Substance: NIVOLUMAB
     Indication: MALIGNANT MELANOMA
     Dosage: UNK
     Route: 065
     Dates: start: 20190829

REACTIONS (7)
  - Condition aggravated [Unknown]
  - Malignant neoplasm progression [Fatal]
  - Skin cancer [Fatal]
  - Fatigue [Unknown]
  - Pyrexia [Recovered/Resolved]
  - Metastatic malignant melanoma [Fatal]
  - Abdominal pain upper [Recovered/Resolved]

NARRATIVE: CASE EVENT DATE: 20190821
